FAERS Safety Report 7297860-6 (Version None)
Quarter: 2011Q1

REPORT INFORMATION
  Report Type: 
  Country: None (occurrence: None)
  Receive Date: 20110217
  Receipt Date: 20101117
  Transmission Date: 20110831
  Serious: No
  Sender: FDA-Public Use
  Company Number: US-KINGPHARMUSA00001-K201001419

PATIENT
  Age: 58 Year
  Sex: Male
  Weight: 86.168 kg

DRUGS (2)
  1. FLECTOR [Suspect]
     Dosage: UNK
     Dates: start: 20101101
  2. FLECTOR [Suspect]
     Indication: BACK PAIN
     Dosage: 1 PATCH, UNK
     Route: 061
     Dates: start: 20101101, end: 20101101

REACTIONS (3)
  - ORAL PAIN [None]
  - ORAL DISCOMFORT [None]
  - FEELING ABNORMAL [None]
